FAERS Safety Report 5532236-0 (Version None)
Quarter: 2007Q4

REPORT INFORMATION
  Report Type: 
  Country: None (occurrence: None)
  Receive Date: 20071129
  Receipt Date: 20071129
  Transmission Date: 20080405
  Serious: No
  Sender: FDA-Public Use
  Company Number: None

PATIENT
  Age: 10 Year
  Sex: Male

DRUGS (2)
  1. TRILEPTAL [Suspect]
     Indication: ABNORMAL BEHAVIOUR
     Dosage: PAST 1-2 MOS
  2. TRILEPTAL [Suspect]
     Indication: CEREBRAL PALSY
     Dosage: PAST 1-2 MOS

REACTIONS (2)
  - PHARMACEUTICAL PRODUCT COMPLAINT [None]
  - SEDATION [None]
